FAERS Safety Report 14577030 (Version 1)
Quarter: 2018Q1

REPORT INFORMATION
  Report Type: Spontaneous
  Country: US (occurrence: US)
  Receive Date: 20180225
  Receipt Date: 20180225
  Transmission Date: 20180509
  Serious: Yes (Hospitalization, Disabling)
  Sender: FDA-Public Use
  Company Number: None

PATIENT
  Age: 67 Year
  Sex: Male
  Weight: 105.51 kg

DRUGS (1)
  1. MITOMYCIN. [Suspect]
     Active Substance: MITOMYCIN
     Indication: ANAL CANCER
     Route: 042
     Dates: start: 20130822, end: 20130926

REACTIONS (3)
  - Respiratory disorder [None]
  - Pulmonary toxicity [None]
  - Dyspnoea [None]

NARRATIVE: CASE EVENT DATE: 20131231
